FAERS Safety Report 5749245-9 (Version None)
Quarter: 2008Q2

REPORT INFORMATION
  Report Type: 
  Country: None (occurrence: None)
  Receive Date: 20080521
  Receipt Date: 20080521
  Transmission Date: 20081010
  Serious: No
  Sender: FDA-Public Use
  Company Number: None

PATIENT
  Age: 64 Year
  Sex: Male
  Weight: 83.9154 kg

DRUGS (1)
  1. CIALIS [Suspect]
     Indication: ERECTILE DYSFUNCTION
     Dosage: 1 AS NEEDED PO
     Route: 048
     Dates: start: 20080401, end: 20080509

REACTIONS (3)
  - HYPERTENSION [None]
  - IMPAIRED DRIVING ABILITY [None]
  - PENILE HAEMORRHAGE [None]
